FAERS Safety Report 10499445 (Version 1)
Quarter: 2014Q4

REPORT INFORMATION
  Report Type: Report from Study
  Country: NL (occurrence: NL)
  Receive Date: 20141006
  Receipt Date: 20141006
  Transmission Date: 20150528
  Serious: Yes (Hospitalization)
  Sender: FDA-Public Use
  Company Number: NL-ABBVIE-14K-114-1290854-00

PATIENT
  Age: 4 Month
  Sex: Male
  Weight: 5.5 kg

DRUGS (3)
  1. SYNAGIS [Suspect]
     Active Substance: PALIVIZUMAB
     Indication: PREMATURE BABY
     Route: 030
     Dates: start: 20140902
  2. FERROFLUNARATE [Concomitant]
     Indication: PRODUCT USED FOR UNKNOWN INDICATION
     Dosage: 20=1 PCH, SUSPENSION 20 MG/ML
     Route: 048
  3. XYLOMETAZOLINUM [Concomitant]
     Indication: PRODUCT USED FOR UNKNOWN INDICATION
     Route: 045

REACTIONS (2)
  - Bacterial sepsis [Not Recovered/Not Resolved]
  - Investigation [Not Recovered/Not Resolved]

NARRATIVE: CASE EVENT DATE: 20140926
